FAERS Safety Report 25099469 (Version 2)
Quarter: 2025Q1

REPORT INFORMATION
  Report Type: Spontaneous
  Country: ZA (occurrence: ZA)
  Receive Date: 20250320
  Receipt Date: 20250327
  Transmission Date: 20250409
  Serious: Yes (Hospitalization)
  Sender: BAYER HEALTHCARE PHARMACEUTICALS INC.
  Company Number: ZA-BAYER-2025A034970

PATIENT
  Age: 52 Year
  Sex: Female

DRUGS (23)
  1. ANGELIQ [Suspect]
     Active Substance: DROSPIRENONE\ESTRADIOL
     Dosage: 1 DF, QD
     Route: 048
  2. COLCHICINE [Concomitant]
     Active Substance: COLCHICINE
     Route: 048
  3. ACETAMINOPHEN [Concomitant]
     Active Substance: ACETAMINOPHEN
     Route: 048
  4. ETORICOXIB [Concomitant]
     Active Substance: ETORICOXIB
     Indication: Pain
     Dosage: 1 DF, QD
     Route: 048
  5. CYCLOBENZAPRINE HYDROCHLORIDE [Concomitant]
     Active Substance: CYCLOBENZAPRINE HYDROCHLORIDE
     Route: 048
  6. Spersadexoline [Concomitant]
     Route: 047
  7. ALEVE [Concomitant]
     Active Substance: NAPROXEN SODIUM
  8. TOBREX [Concomitant]
     Active Substance: TOBRAMYCIN
     Route: 047
  9. NEVANAC [Concomitant]
     Active Substance: NEPAFENAC
     Route: 047
  10. Fenak [Concomitant]
  11. RYALTRIS [Concomitant]
     Active Substance: MOMETASONE FUROATE MONOHYDRATE\OLOPATADINE HYDROCHLORIDE
     Route: 045
  12. Allermine [Concomitant]
     Route: 048
  13. Allergex [Concomitant]
     Route: 048
  14. VALACYCLOVIR HYDROCHLORIDE [Concomitant]
     Active Substance: VALACYCLOVIR HYDROCHLORIDE
     Dosage: 1 DF, BID
     Route: 048
  15. ZENTEL [Concomitant]
     Active Substance: ALBENDAZOLE
     Dosage: 1 DF, QD
     Route: 048
  16. DIFLUCORTOLONE VALERATE\ISOCONAZOLE NITRATE [Concomitant]
     Active Substance: DIFLUCORTOLONE VALERATE\ISOCONAZOLE NITRATE
     Route: 061
  17. ETORICOXIB [Concomitant]
     Active Substance: ETORICOXIB
     Dosage: 1 DF, QD
     Route: 048
  18. Andolex c [Concomitant]
     Route: 048
  19. Strepsils Intensive [Concomitant]
     Route: 048
  20. Oratane [Concomitant]
     Dosage: 1 DF, OW
     Route: 048
  21. Pantocid [Concomitant]
     Route: 048
  22. RIZATRIPTAN [Concomitant]
     Active Substance: RIZATRIPTAN
     Route: 048
  23. Maxaderm [Concomitant]
     Route: 061

REACTIONS (3)
  - Musculoskeletal stiffness [None]
  - Neck pain [None]
  - Malaise [None]

NARRATIVE: CASE EVENT DATE: 20150101
